FAERS Safety Report 9293633 (Version 1)
Quarter: 2013Q2

REPORT INFORMATION
  Report Type: Spontaneous
  Country: FR (occurrence: FR)
  Receive Date: 20130516
  Receipt Date: 20130516
  Transmission Date: 20140414
  Serious: Yes (Hospitalization)
  Sender: FDA-Public Use
  Company Number: US-MYLANLABS-2013S1010095

PATIENT
  Age: 47 Year
  Sex: Male

DRUGS (2)
  1. EPINEPHRINE [Suspect]
     Indication: VENTRICULAR TACHYCARDIA
     Dosage: 1/10 000, 1 MG WITHIN 1MIN, IV BOLUS
     Route: 042
  2. AMIODARONE [Suspect]
     Indication: VENTRICULAR TACHYCARDIA
     Dosage: 300MG, IV INTRAVENOUS
     Route: 042

REACTIONS (9)
  - Ventricular tachycardia [Recovered/Resolved]
  - Condition aggravated [Unknown]
  - Off label use [Unknown]
  - Chest discomfort [Unknown]
  - Drug ineffective [Unknown]
  - Nausea [Unknown]
  - Anxiety [Unknown]
  - Hyperhidrosis [Unknown]
  - Blood pressure decreased [Unknown]
